FAERS Safety Report 12870114 (Version 2)
Quarter: 2017Q1

REPORT INFORMATION
  Report Type: Spontaneous
  Country: AU (occurrence: AU)
  Receive Date: 20161021
  Receipt Date: 20170210
  Transmission Date: 20170428
  Serious: Yes (Death)
  Sender: FDA-Public Use
  Company Number: AU-PFIZER INC-2016477388

PATIENT
  Age: 53 Year
  Sex: Male

DRUGS (8)
  1. FENTANYL. [Concomitant]
     Active Substance: FENTANYL
     Dosage: 1 EVERY 3 DAYS
  2. KEPPRA [Concomitant]
     Active Substance: LEVETIRACETAM
     Dosage: 500 MG, 2X/DAY
  3. CLEXANE [Concomitant]
     Active Substance: ENOXAPARIN SODIUM
     Dosage: 85 IU, 2X/DAY
  4. SOMAC [Concomitant]
     Active Substance: PANTOPRAZOLE SODIUM
     Dosage: 40 MG, DAILY - IN THE MORNING
  5. XALKORI [Suspect]
     Active Substance: CRIZOTINIB
     Dosage: 200 MG, DAILY - IN THE MORNING
  6. DEXAMETHASONE. [Concomitant]
     Active Substance: DEXAMETHASONE
     Dosage: 4 MG, DAILY
  7. DEXAMETHASONE. [Concomitant]
     Active Substance: DEXAMETHASONE
     Dosage: 2 MG, 1X/DAY
  8. LACTULOSE. [Concomitant]
     Active Substance: LACTULOSE
     Dosage: 10-20 ML IN THE EVENING

REACTIONS (1)
  - Pulmonary embolism [Fatal]
